FAERS Safety Report 6168388-1 (Version None)
Quarter: 2009Q2

REPORT INFORMATION
  Report Type: 
  Country: None (occurrence: None)
  Receive Date: 20090423
  Receipt Date: 20090408
  Transmission Date: 20091009
  Serious: Yes (Other)
  Sender: FDA-Public Use
  Company Number: 2009AL002309

PATIENT
  Sex: Male

DRUGS (12)
  1. RAMIPRIL [Suspect]
     Indication: HYPERTENSION
     Dosage: 5 MG; PO
     Route: 048
     Dates: start: 20090320
  2. SOTALOL HYDROCHLORIDE [Concomitant]
  3. SIMVASTATIN [Concomitant]
  4. LATANOPROST [Concomitant]
  5. CALCICHEW D3 [Concomitant]
  6. DORZOLAMIDE [Concomitant]
  7. TIMOLOL MALEATE [Concomitant]
  8. PREDNISOLONE [Concomitant]
  9. WARFARIN [Concomitant]
  10. TAMSULOSIN HCL [Concomitant]
  11. LORATADINE [Concomitant]
  12. AMLODIPINE [Concomitant]

REACTIONS (1)
  - BLOOD PRESSURE INCREASED [None]
